FAERS Safety Report 18227013 (Version 4)
Quarter: 2020Q4

REPORT INFORMATION
  Report Type: Spontaneous
  Country: IL (occurrence: IL)
  Receive Date: 20200903
  Receipt Date: 20201030
  Transmission Date: 20210113
  Serious: Yes (Life-Threatening, Hospitalization)
  Sender: FDA-Public Use
  Company Number: IL-PFIZER INC-2020338534

PATIENT
  Age: 16 Year
  Sex: Male

DRUGS (2)
  1. GENOTROPIN [Suspect]
     Active Substance: SOMATROPIN
     Indication: SHORT STATURE
     Dosage: UNK (HIGH DOSES THAT REACHED UP TO 4.3 MG PER DAY)
  2. NORDITROPIN [Suspect]
     Active Substance: SOMATROPIN
     Indication: SHORT STATURE
     Dosage: UNK

REACTIONS (4)
  - Product use in unapproved indication [Unknown]
  - Ventricular fibrillation [Unknown]
  - Hypertrophic cardiomyopathy [Unknown]
  - Off label use [Unknown]
